FAERS Safety Report 5141983-4 (Version None)
Quarter: 2006Q4

REPORT INFORMATION
  Report Type: 
  Country: None (occurrence: None)
  Receive Date: 20061102
  Receipt Date: 20061024
  Transmission Date: 20070319
  Serious: Yes (Other)
  Sender: FDA-Public Use
  Company Number: US-ROXANE LABORATORIES, INC-2006-DE-05640GD

PATIENT
  Sex: Female

DRUGS (1)
  1. MORPHINE [Suspect]
     Indication: PAIN

REACTIONS (2)
  - DELIRIUM [None]
  - HALLUCINATION [None]
